FAERS Safety Report 24985894 (Version 1)
Quarter: 2025Q1

REPORT INFORMATION
  Report Type: Spontaneous
  Country: FR (occurrence: FR)
  Receive Date: 20250219
  Receipt Date: 20250219
  Transmission Date: 20250409
  Serious: Yes (Hospitalization)
  Sender: PFIZER
  Company Number: None

PATIENT
  Age: 43 Year
  Sex: Male
  Weight: 108 kg

DRUGS (12)
  1. BRAFTOVI [Suspect]
     Active Substance: ENCORAFENIB
     Indication: Metastatic malignant melanoma
     Dosage: 6 DF DAILY
     Route: 048
     Dates: start: 20250117, end: 20250120
  2. MEKTOVI [Suspect]
     Active Substance: BINIMETINIB
     Indication: Metastatic malignant melanoma
     Dosage: 3X2/DAY
     Route: 048
     Dates: start: 20250117, end: 20250120
  3. CALCIUM CARBONATE [Concomitant]
     Active Substance: CALCIUM CARBONATE
  4. METOCLOPRAMIDE [Concomitant]
     Active Substance: METOCLOPRAMIDE
  5. TRIMEBUTINE [Concomitant]
     Active Substance: TRIMEBUTINE
  6. LANSOPRAZOLE [Concomitant]
     Active Substance: LANSOPRAZOLE
  7. TRAMADOL HYDROCHLORIDE [Concomitant]
     Active Substance: TRAMADOL HYDROCHLORIDE
  8. ATORVASTATIN CALCIUM [Concomitant]
     Active Substance: ATORVASTATIN CALCIUM
  9. RACECADOTRIL [Concomitant]
     Active Substance: RACECADOTRIL
  10. POTASSIUM [Concomitant]
     Active Substance: POTASSIUM
  11. PREDNISONE [Concomitant]
     Active Substance: PREDNISONE
  12. LEVACETYLLEUCINE [Concomitant]
     Active Substance: LEVACETYLLEUCINE

REACTIONS (2)
  - Hepatic cytolysis [Not Recovered/Not Resolved]
  - Gamma-glutamyltransferase increased [Not Recovered/Not Resolved]

NARRATIVE: CASE EVENT DATE: 20250120
